FAERS Safety Report 9885408 (Version 1)
Quarter: 2014Q1

REPORT INFORMATION
  Report Type: Spontaneous
  Country: US (occurrence: US)
  Receive Date: 20140210
  Receipt Date: 20140210
  Transmission Date: 20141002
  Serious: No
  Sender: FDA-Public Use
  Company Number: US-009507513-1402USA003517

PATIENT
  Sex: Male

DRUGS (2)
  1. CORICIDIN HBP CHEST CONGESTION AND COUGH [Suspect]
     Indication: RESPIRATORY TRACT CONGESTION
     Dosage: UNK, UNKNOWN
     Route: 048
  2. CORICIDIN HBP CHEST CONGESTION AND COUGH [Suspect]
     Indication: SINUS DISORDER

REACTIONS (2)
  - Mucosal dryness [Unknown]
  - Drug ineffective [Unknown]
